FAERS Safety Report 10594683 (Version 2)
Quarter: 2014Q4

REPORT INFORMATION
  Report Type: Spontaneous
  Country: US (occurrence: US)
  Receive Date: 20141120
  Receipt Date: 20141120
  Transmission Date: 20150529
  Serious: Yes (Other)
  Sender: FDA-Public Use
  Company Number: US-TEVA-487321USA

PATIENT
  Sex: Female

DRUGS (4)
  1. AMIODARONE [Suspect]
     Active Substance: AMIODARONE
     Indication: CARDIAC DISORDER
     Route: 048
     Dates: start: 20140109, end: 201405
  2. IRON [Concomitant]
     Active Substance: IRON
  3. LASIX [Concomitant]
     Active Substance: FUROSEMIDE
  4. POTASSIUM [Concomitant]
     Active Substance: POTASSIUM

REACTIONS (8)
  - Liver function test abnormal [Recovered/Resolved]
  - Thyroid disorder [Unknown]
  - Dyspnoea [Recovered/Resolved]
  - Rash [Recovering/Resolving]
  - Malaise [Recovered/Resolved]
  - Visual impairment [Recovered/Resolved]
  - Pigmentation disorder [Recovering/Resolving]
  - Thyroid function test abnormal [Unknown]
